FAERS Safety Report 14166398 (Version 1)
Quarter: 2017Q4

REPORT INFORMATION
  Report Type: Spontaneous
  Country: US (occurrence: US)
  Receive Date: 20171107
  Receipt Date: 20171107
  Transmission Date: 20180321
  Serious: Yes (Other)
  Sender: FDA-Public Use
  Company Number: US-AMGEN-USASP2017153010

PATIENT
  Age: 74 Year
  Sex: Male

DRUGS (8)
  1. CISPLATIN. [Concomitant]
     Active Substance: CISPLATIN
     Dosage: UNK
     Dates: start: 20161101
  2. CISPLATIN. [Concomitant]
     Active Substance: CISPLATIN
     Dosage: UNK, DAY 2 WITH CYCLE 2
     Dates: start: 20161207
  3. CARBOPLATIN. [Concomitant]
     Active Substance: CARBOPLATIN
     Dosage: UNK
     Dates: start: 20170821
  4. GEMZAR [Concomitant]
     Active Substance: GEMCITABINE HYDROCHLORIDE
     Dosage: UNK
     Dates: start: 20161101
  5. GEMZAR [Concomitant]
     Active Substance: GEMCITABINE HYDROCHLORIDE
     Dosage: UNK, DAYS 1, 8 AND 15 ON DAY 2 WITH CYCLE 2
     Dates: start: 20161207
  6. NEULASTA [Suspect]
     Active Substance: PEGFILGRASTIM
     Indication: PRODUCT USED FOR UNKNOWN INDICATION
     Dosage: UNK
     Route: 065
  7. ALIMTA [Concomitant]
     Active Substance: PEMETREXED DISODIUM
     Dosage: UNK
     Dates: start: 20170821
  8. PEMBROLIZUMAB. [Concomitant]
     Active Substance: PEMBROLIZUMAB
     Dosage: UNK
     Dates: start: 20170821

REACTIONS (15)
  - Splenic haemorrhage [Recovering/Resolving]
  - Metastases to central nervous system [Unknown]
  - Fluid overload [Unknown]
  - Transitional cell carcinoma [Unknown]
  - Metastases to bone [Unknown]
  - Bone marrow failure [Unknown]
  - Neutropenia [Unknown]
  - Fatigue [Unknown]
  - Metastases to liver [Recovering/Resolving]
  - Liver function test abnormal [Unknown]
  - Application site discomfort [Unknown]
  - Metastases to lung [Recovering/Resolving]
  - Metastases to the mediastinum [Unknown]
  - Thrombocytopenia [Unknown]
  - Application site haemorrhage [Unknown]

NARRATIVE: CASE EVENT DATE: 2016
